FAERS Safety Report 6928233-0 (Version None)
Quarter: 2010Q3

REPORT INFORMATION
  Report Type: 
  Country: None (occurrence: None)
  Receive Date: 20100817
  Receipt Date: 20100809
  Transmission Date: 20110219
  Serious: Yes (Other)
  Sender: FDA-Public Use
  Company Number: CO-ROCHE-719852

PATIENT
  Sex: Male

DRUGS (4)
  1. CELLCEPT [Suspect]
     Dosage: FREQUENCY: QD, ROUTE: PO.
     Route: 048
     Dates: start: 20060906
  2. CYCLOSPORINE [Concomitant]
     Dosage: ROUTE: PO.
     Route: 048
  3. PREDNISOLONE [Concomitant]
     Dosage: FREQUENCY: QD, ROUTE: PO.
     Route: 048
  4. ENALAPRIL [Concomitant]
     Dosage: FREQUENCY: QD, ROUTE: 20 MG.
     Route: 048

REACTIONS (1)
  - TRANSPLANT REJECTION [None]
